FAERS Safety Report 4721418-3 (Version None)
Quarter: 2005Q3

REPORT INFORMATION
  Report Type: 
  Country: None (occurrence: None)
  Receive Date: 20050721
  Receipt Date: 20040817
  Transmission Date: 20060218
  Serious: No
  Sender: FDA-Public Use
  Company Number: US-BRISTOL-MYERS SQUIBB COMPANY-12675591

PATIENT
  Age: 74 Year
  Sex: Male
  Weight: 77 kg

DRUGS (3)
  1. COUMADIN [Suspect]
     Indication: PROPHYLAXIS
     Route: 048
     Dates: start: 19840101
  2. LANOXIN [Concomitant]
  3. CALAN [Concomitant]

REACTIONS (2)
  - ALOPECIA [None]
  - HYPOTRICHOSIS [None]
